FAERS Safety Report 6361813-2 (Version None)
Quarter: 2009Q3

REPORT INFORMATION
  Report Type: 
  Country: None (occurrence: None)
  Receive Date: 20090918
  Receipt Date: 20090914
  Transmission Date: 20100115
  Serious: Yes (Other)
  Sender: FDA-Public Use
  Company Number: TR-MEDIMMUNE-MEDI-0008864

PATIENT
  Sex: Male
  Weight: 80 kg

DRUGS (3)
  1. ETHYOL [Suspect]
     Indication: RADIOTHERAPY
     Route: 058
     Dates: start: 20090828, end: 20090910
  2. RADIATION THERAPY [Concomitant]
  3. UNKNOWN CHEMOTHERAPY DRUG [Concomitant]

REACTIONS (2)
  - CHEST DISCOMFORT [None]
  - MUSCULOSKELETAL CHEST PAIN [None]
